FAERS Safety Report 22037300 (Version 1)
Quarter: 2023Q1

REPORT INFORMATION
  Report Type: Spontaneous
  Country: US (occurrence: US)
  Receive Date: 20230226
  Receipt Date: 20230226
  Transmission Date: 20230418
  Serious: No
  Sender: FDA-Public Use
  Company Number: US-BAUSCHBL-2023BNL001539

PATIENT
  Sex: Female

DRUGS (1)
  1. VYZULTA [Suspect]
     Active Substance: LATANOPROSTENE BUNOD
     Indication: Product used for unknown indication
     Dosage: 1 DROP IN EACH EYE AT NIGHT
     Route: 047
     Dates: start: 20221126

REACTIONS (4)
  - Instillation site dryness [Unknown]
  - COVID-19 [Unknown]
  - Sinusitis [Unknown]
  - Instillation site pain [Unknown]

NARRATIVE: CASE EVENT DATE: 20230201
